FAERS Safety Report 8082265-0 (Version None)
Quarter: 2012Q1

REPORT INFORMATION
  Report Type: 
  Country: None (occurrence: None)
  Receive Date: 20120127
  Receipt Date: 20110211
  Transmission Date: 20120608
  Serious: No
  Sender: FDA-Public Use
  Company Number: US-ABBOTT-11P-163-0705419-00

PATIENT
  Sex: Female
  Weight: 74.456 kg

DRUGS (4)
  1. PREDNISONE TAB [Concomitant]
     Indication: PRODUCT USED FOR UNKNOWN INDICATION
     Route: 048
  2. METHOTREXATE [Concomitant]
     Indication: RHEUMATOID ARTHRITIS
     Dosage: 0.8; INTO LEGS 1 IN 1 WEEK
     Dates: start: 20070101, end: 20110101
  3. METHOTREXATE [Concomitant]
     Dosage: INTO LEGS; 1 IN 1 WEEK
     Route: 050
     Dates: start: 20110101
  4. HUMIRA [Suspect]
     Indication: RHEUMATOID ARTHRITIS
     Dates: start: 20100201, end: 20101101

REACTIONS (7)
  - DRUG INEFFECTIVE [None]
  - INJECTION SITE PAIN [None]
  - VISUAL IMPAIRMENT [None]
  - EMOTIONAL DISTRESS [None]
  - PAIN [None]
  - BALANCE DISORDER [None]
  - NAUSEA [None]
